FAERS Safety Report 6175594-9 (Version None)
Quarter: 2009Q2

REPORT INFORMATION
  Report Type: 
  Country: None (occurrence: None)
  Receive Date: 20090501
  Receipt Date: 20090423
  Transmission Date: 20091009
  Serious: Yes (Death)
  Sender: FDA-Public Use
  Company Number: FR-JNJFOC-20090407027

PATIENT
  Sex: Female

DRUGS (4)
  1. TOPALGIC [Suspect]
     Indication: INTENTIONAL OVERDOSE
     Route: 048
  2. EQUANIL [Suspect]
     Indication: INTENTIONAL OVERDOSE
     Route: 048
  3. LAROXYL [Interacting]
     Indication: INTENTIONAL OVERDOSE
     Route: 048
  4. ALCOHOL [Interacting]
     Indication: INTENTIONAL OVERDOSE
     Route: 048

REACTIONS (4)
  - COMPLETED SUICIDE [None]
  - DRUG INTERACTION [None]
  - INTENTIONAL OVERDOSE [None]
  - RESPIRATORY FAILURE [None]
